FAERS Safety Report 6074760-0 (Version None)
Quarter: 2009Q1

REPORT INFORMATION
  Report Type: 
  Country: None (occurrence: None)
  Receive Date: 20090212
  Receipt Date: 20090205
  Transmission Date: 20090719
  Serious: Yes (Hospitalization)
  Sender: FDA-Public Use
  Company Number: NL-JNJFOC-20090202212

PATIENT
  Sex: Male
  Weight: 64 kg

DRUGS (2)
  1. RISPERDAL [Suspect]
     Route: 048
  2. RISPERDAL [Suspect]
     Indication: SCHIZOPHRENIA, CATATONIC TYPE
     Route: 048

REACTIONS (7)
  - DISTURBANCE IN SOCIAL BEHAVIOUR [None]
  - DYSPHONIA [None]
  - FATIGUE [None]
  - HALLUCINATION, AUDITORY [None]
  - INAPPROPRIATE AFFECT [None]
  - MUSCLE CONTRACTURE [None]
  - PAIN [None]
